FAERS Safety Report 7855227-3 (Version None)
Quarter: 2011Q4

REPORT INFORMATION
  Report Type: 
  Country: None (occurrence: None)
  Receive Date: 20111026
  Receipt Date: 20111019
  Transmission Date: 20120403
  Serious: Yes (Hospitalization, Other)
  Sender: FDA-Public Use
  Company Number: BR-PFIZER INC-2011251993

PATIENT
  Age: 58 Year
  Sex: Female
  Weight: 57 kg

DRUGS (3)
  1. TENORETIC 100 [Concomitant]
     Indication: HYPERTENSION
     Dosage: ATENOLOL 100MG/ CHLORTALIDONE 50MG, ONCE DAILY
     Dates: start: 20010101
  2. VARENICLINE TARTRATE [Suspect]
     Dosage: 1 MG, 2X/DAY
     Route: 048
     Dates: start: 20110101, end: 20111013
  3. VARENICLINE TARTRATE [Suspect]
     Indication: SMOKING CESSATION THERAPY
     Dosage: UNK
     Route: 048
     Dates: start: 20110721, end: 20110101

REACTIONS (4)
  - BLOOD PRESSURE INCREASED [None]
  - BLOOD POTASSIUM DECREASED [None]
  - HEADACHE [None]
  - CONVULSION [None]
